FAERS Safety Report 8519303-4 (Version None)
Quarter: 2012Q3

REPORT INFORMATION
  Report Type: 
  Country: None (occurrence: None)
  Receive Date: 20120718
  Receipt Date: 20120712
  Transmission Date: 20120928
  Serious: Yes (Hospitalization)
  Sender: FDA-Public Use
  Company Number: US-ROCHE-1088016

PATIENT
  Sex: Male
  Weight: 73.094 kg

DRUGS (3)
  1. ADVAIR DISKUS 100/50 [Concomitant]
  2. SPIRIVA [Concomitant]
  3. OMALIZUMAB [Suspect]
     Indication: ASTHMA
     Route: 058
     Dates: start: 20070926, end: 20120601

REACTIONS (2)
  - PNEUMONIA BACTERIAL [None]
  - SEPSIS [None]
